FAERS Safety Report 15684258 (Version 10)
Quarter: 2019Q4

REPORT INFORMATION
  Report Type: Report from Study
  Country: CN (occurrence: CN)
  Receive Date: 20181204
  Receipt Date: 20191216
  Transmission Date: 20200122
  Serious: Yes (Death, Hospitalization)
  Sender: FDA-Public Use
  Company Number: CN-ROCHE-2213171

PATIENT
  Age: 58 Year
  Sex: Male
  Weight: 50 kg

DRUGS (40)
  1. IRON SUCROSE [Concomitant]
     Active Substance: IRON SUCROSE
     Dosage: LIQUID
     Route: 042
     Dates: start: 20181106, end: 20181115
  2. TRAMADOL. [Concomitant]
     Active Substance: TRAMADOL
     Route: 048
     Dates: end: 20181017
  3. POTASSIUM CHLORIDE. [Concomitant]
     Active Substance: POTASSIUM CHLORIDE
     Route: 042
     Dates: start: 20181111, end: 20181112
  4. MANNITOL. [Concomitant]
     Active Substance: MANNITOL
     Route: 042
     Dates: start: 20181115, end: 20181115
  5. BUDESONIDE. [Concomitant]
     Active Substance: BUDESONIDE
  6. HEPARIN SODIUM. [Concomitant]
     Active Substance: HEPARIN SODIUM
     Indication: PROPHYLAXIS
     Dosage: LOW MOLECULAR WEIGHT?LIQUID
     Route: 058
     Dates: start: 20181108, end: 20181115
  7. NIFEDIPINE. [Concomitant]
     Active Substance: NIFEDIPINE
     Dosage: CONTROLLED RELEASE
     Route: 048
  8. IRON SUCROSE [Concomitant]
     Active Substance: IRON SUCROSE
     Dosage: LIQUID
     Route: 042
     Dates: start: 20181023, end: 20181023
  9. TRAMADOL HYDROCHLORIDE. [Concomitant]
     Active Substance: TRAMADOL HYDROCHLORIDE
     Dosage: SUSTAINED RELEASE TABLETS
     Route: 048
     Dates: start: 20181017, end: 20181019
  10. POTASSIUM CHLORIDE. [Concomitant]
     Active Substance: POTASSIUM CHLORIDE
     Route: 042
     Dates: start: 20181106, end: 20181115
  11. LOPERAMIDE HYDROCHLORIDE. [Concomitant]
     Active Substance: LOPERAMIDE HYDROCHLORIDE
     Indication: DIARRHOEA
     Route: 048
     Dates: start: 20181106, end: 20181109
  12. HUMAN ALBUMIN [Concomitant]
     Active Substance: ALBUMIN HUMAN
     Indication: HYPOALBUMINAEMIA
     Route: 042
     Dates: start: 20181108, end: 20181115
  13. RECOMBINANT HUMAN THROMBOPOIETIN [Concomitant]
     Active Substance: THROMBOPOIETIN
     Indication: PLATELET COUNT DECREASED
     Dosage: DOSE: 15000 U(UNIT)
     Route: 058
     Dates: start: 20181115, end: 20181115
  14. FUROSEMIDE. [Concomitant]
     Active Substance: FUROSEMIDE
     Route: 042
     Dates: start: 20181111, end: 20181111
  15. METHYLPREDNISOLONE. [Concomitant]
     Active Substance: METHYLPREDNISOLONE
     Indication: INFLAMMATION
  16. RECOMBINANT HUMAN INTERLEUKIN-11 [Concomitant]
     Active Substance: OPRELVEKIN
     Indication: PLATELET COUNT DECREASED
     Route: 058
     Dates: start: 20181113, end: 20181114
  17. MORPHINE HYDROCHLORIDE [Concomitant]
     Active Substance: MORPHINE HYDROCHLORIDE
     Route: 058
     Dates: start: 20181111, end: 20181112
  18. OXYCODONE HYDROCHLORIDE. [Concomitant]
     Active Substance: OXYCODONE HYDROCHLORIDE
     Route: 048
     Dates: start: 20181112, end: 20181114
  19. FU FANG DAN SHEN PIAN [Concomitant]
     Route: 048
     Dates: start: 20181109, end: 20181115
  20. FU FANG DAN SHEN PIAN [Concomitant]
     Route: 048
     Dates: start: 20181113, end: 20181113
  21. SODIUM CHLORIDE. [Concomitant]
     Active Substance: SODIUM CHLORIDE
     Dosage: LIQUID
     Route: 042
     Dates: start: 20181106, end: 20181108
  22. SODIUM CHLORIDE. [Concomitant]
     Active Substance: SODIUM CHLORIDE
     Route: 042
     Dates: start: 20181108, end: 20181115
  23. PANTOPRAZOLE SODIUM. [Concomitant]
     Active Substance: PANTOPRAZOLE SODIUM
     Dosage: LIQUID
     Route: 042
     Dates: start: 20181106, end: 20181113
  24. BISMUTH POTASSIUM CITRATE [Concomitant]
     Route: 065
     Dates: start: 20181107, end: 20181115
  25. METHYLPREDNISOLONE SODIUM SUCCINATE. [Concomitant]
     Active Substance: METHYLPREDNISOLONE SODIUM SUCCINATE
     Route: 042
     Dates: start: 20181114, end: 20181114
  26. METHYLPREDNISOLONE SODIUM SUCCINATE. [Concomitant]
     Active Substance: METHYLPREDNISOLONE SODIUM SUCCINATE
     Route: 065
     Dates: start: 20181115, end: 20181115
  27. RECOMBINANT HUMAN THROMBOPOIETIN [Concomitant]
     Active Substance: THROMBOPOIETIN
     Route: 058
     Dates: start: 20181111, end: 20181114
  28. MANNITOL. [Concomitant]
     Active Substance: MANNITOL
     Route: 042
     Dates: start: 20181112, end: 20181112
  29. MANNITOL. [Concomitant]
     Active Substance: MANNITOL
     Route: 042
     Dates: start: 20181113, end: 20181114
  30. TORASEMIDE [Concomitant]
     Active Substance: TORSEMIDE
     Route: 042
     Dates: start: 20181115, end: 20181115
  31. OXYCODONE HYDROCHLORIDE. [Concomitant]
     Active Substance: OXYCODONE HYDROCHLORIDE
     Route: 048
     Dates: start: 20181115, end: 20181115
  32. POTASSIUM CHLORIDE. [Concomitant]
     Active Substance: POTASSIUM CHLORIDE
     Route: 042
     Dates: start: 20181112, end: 20181114
  33. METHYLPREDNISOLONE SODIUM SUCCINATE. [Concomitant]
     Active Substance: METHYLPREDNISOLONE SODIUM SUCCINATE
     Route: 042
     Dates: start: 20181010, end: 20181113
  34. FAT EMULSION NOS [Concomitant]
     Active Substance: EGG PHOSPHOLIPIDS\SAFFLOWER OIL\SOYBEAN OIL
     Route: 042
     Dates: start: 20181114, end: 20181115
  35. DIPROPHYLLINE [Concomitant]
     Active Substance: DYPHYLLINE
     Route: 042
     Dates: start: 20181114, end: 20181115
  36. ESMOLOL HYDROCHLORIDE. [Concomitant]
     Active Substance: ESMOLOL HYDROCHLORIDE
     Route: 042
     Dates: start: 20181114, end: 20181114
  37. ATEZOLIZUMAB. [Suspect]
     Active Substance: ATEZOLIZUMAB
     Indication: NON-SMALL CELL LUNG CANCER
     Dosage: 25/OCT/2018, AT 10.35, MOST RECENT DOSE OF ATEZOLIZUMAB PRIOR TO SAE ONSET
     Route: 042
     Dates: start: 20181025
  38. AMLODIPINE BESYLATE. [Concomitant]
     Active Substance: AMLODIPINE BESYLATE
     Route: 048
  39. OXYCODONE HYDROCHLORIDE. [Concomitant]
     Active Substance: OXYCODONE HYDROCHLORIDE
     Dosage: PROLONGED RELEASE TABLET
     Route: 048
     Dates: start: 20181019, end: 20181111
  40. DEXAMETHASONE SODIUM PHOSPHATE. [Concomitant]
     Active Substance: DEXAMETHASONE SODIUM PHOSPHATE
     Route: 042
     Dates: start: 20181112, end: 20181112

REACTIONS (1)
  - Systemic inflammatory response syndrome [Fatal]

NARRATIVE: CASE EVENT DATE: 20181106
